FAERS Safety Report 15663411 (Version 1)
Quarter: 2018Q4

REPORT INFORMATION
  Report Type: Report from Study
  Country: None (occurrence: OM)
  Receive Date: 20181128
  Receipt Date: 20181128
  Transmission Date: 20190205
  Serious: Yes (Other)
  Sender: FDA-Public Use
  Company Number: OM-ABBVIE-18K-123-2570610-00

PATIENT
  Age: 28 Year
  Sex: Female

DRUGS (1)
  1. HUMIRA [Suspect]
     Active Substance: ADALIMUMAB
     Indication: CROHN^S DISEASE
     Route: 058
     Dates: start: 20160306, end: 20181126

REACTIONS (3)
  - Inflammation [Unknown]
  - Ulcer [Unknown]
  - Erythema [Unknown]

NARRATIVE: CASE EVENT DATE: 20181122
